FAERS Safety Report 11554160 (Version 3)
Quarter: 2016Q1

REPORT INFORMATION
  Report Type: Report from Study
  Country: US (occurrence: US)
  Receive Date: 20150925
  Receipt Date: 20160212
  Transmission Date: 20160525
  Serious: Yes (Hospitalization, Other)
  Sender: FDA-Public Use
  Company Number: US-ACTELION-A-US2013-82511

PATIENT
  Age: 66 Year
  Sex: Male

DRUGS (2)
  1. ADCIRCA [Concomitant]
     Active Substance: TADALAFIL
  2. TRACLEER [Suspect]
     Active Substance: BOSENTAN
     Indication: PULMONARY ARTERIAL HYPERTENSION
     Dosage: UNK
     Route: 048
     Dates: end: 201508

REACTIONS (11)
  - Sinusitis [Unknown]
  - Haematocrit decreased [Unknown]
  - Haemoglobin decreased [Unknown]
  - Oedema peripheral [Unknown]
  - Bone marrow failure [Unknown]
  - Iron deficiency anaemia [Unknown]
  - Right ventricular systolic pressure increased [Unknown]
  - Anaemia [Unknown]
  - Chest pain [Unknown]
  - Transfusion [Unknown]
  - Joint swelling [Unknown]
